FAERS Safety Report 12224457 (Version 1)
Quarter: 2016Q1

REPORT INFORMATION
  Report Type: Spontaneous
  Country: US (occurrence: US)
  Receive Date: 20160331
  Receipt Date: 20160331
  Transmission Date: 20160526
  Serious: Yes (Hospitalization)
  Sender: FDA-Public Use
  Company Number: US-BIOGEN-2016BI00210602

PATIENT
  Age: 58 Year
  Sex: Female

DRUGS (1)
  1. TYSABRI [Suspect]
     Active Substance: NATALIZUMAB
     Indication: MULTIPLE SCLEROSIS
     Route: 042
     Dates: start: 20100118, end: 20151013

REACTIONS (4)
  - Anaemia [Not Recovered/Not Resolved]
  - Post procedural sepsis [Recovered/Resolved]
  - Upper limb fracture [Recovered/Resolved]
  - Splenectomy [Recovered/Resolved]

NARRATIVE: CASE EVENT DATE: 20130321
